FAERS Safety Report 4514672-4 (Version None)
Quarter: 2004Q4

REPORT INFORMATION
  Report Type: 
  Country: None (occurrence: None)
  Receive Date: 20041126
  Receipt Date: 20041117
  Transmission Date: 20050328
  Serious: Yes (Other)
  Sender: FDA-Public Use
  Company Number: NLWYE212318NOV04

PATIENT
  Sex: Male

DRUGS (1)
  1. EFFEXOR XR [Suspect]
     Dosage: HIGH DOSE ORAL
     Route: 048
     Dates: start: 20020101

REACTIONS (2)
  - ANGIONEUROTIC OEDEMA [None]
  - RASH ERYTHEMATOUS [None]
